FAERS Safety Report 8082227-3 (Version None)
Quarter: 2012Q1

REPORT INFORMATION
  Report Type: 
  Country: None (occurrence: None)
  Receive Date: 20120127
  Receipt Date: 20110131
  Transmission Date: 20120608
  Serious: No
  Sender: FDA-Public Use
  Company Number: US-ABBOTT-11P-163-0702156-00

PATIENT
  Sex: Female
  Weight: 65.83 kg

DRUGS (2)
  1. HYOSCYAMINE [Suspect]
     Indication: ABDOMINAL PAIN UPPER
     Route: 060
     Dates: start: 20110121
  2. HUMIRA [Suspect]
     Indication: PSORIATIC ARTHROPATHY
     Dates: start: 20101001

REACTIONS (8)
  - UPPER-AIRWAY COUGH SYNDROME [None]
  - INFLUENZA LIKE ILLNESS [None]
  - VOMITING [None]
  - ABDOMINAL PAIN UPPER [None]
  - ABDOMINAL DISCOMFORT [None]
  - DIARRHOEA [None]
  - RESPIRATORY TRACT CONGESTION [None]
  - NASOPHARYNGITIS [None]
